FAERS Safety Report 6993219-7 (Version None)
Quarter: 2010Q3

REPORT INFORMATION
  Report Type: 
  Country: None (occurrence: None)
  Receive Date: 20100917
  Receipt Date: 20090818
  Transmission Date: 20110219
  Serious: No
  Sender: FDA-Public Use
  Company Number: US-ASTRAZENECA-2009UW13158

PATIENT
  Age: 32 Year
  Sex: Male
  Weight: 65.3 kg

DRUGS (2)
  1. SEROQUEL XR [Suspect]
     Indication: PERSONALITY DISORDER
     Route: 048
     Dates: start: 20090509, end: 20090521
  2. SEROQUEL XR [Suspect]
     Indication: BIPOLAR DISORDER
     Route: 048
     Dates: start: 20090509, end: 20090521

REACTIONS (7)
  - AMNESIA [None]
  - ANXIETY [None]
  - DRY MOUTH [None]
  - DYSKINESIA [None]
  - IMPULSIVE BEHAVIOUR [None]
  - INCREASED APPETITE [None]
  - TRISMUS [None]
